FAERS Safety Report 9678666 (Version 1)
Quarter: 2013Q4

REPORT INFORMATION
  Report Type: Spontaneous
  Country: US (occurrence: US)
  Receive Date: 20131108
  Receipt Date: 20131108
  Transmission Date: 20140711
  Serious: Yes (Other)
  Sender: FDA-Public Use
  Company Number: US-BAYER-2013-136276

PATIENT
  Age: 44 Year
  Sex: Female

DRUGS (1)
  1. GADAVIST [Suspect]
     Route: 042

REACTIONS (4)
  - Hypersensitivity [None]
  - Rash generalised [None]
  - Dyspnoea [None]
  - Pruritus [None]
